FAERS Safety Report 7360824-8 (Version None)
Quarter: 2011Q1

REPORT INFORMATION
  Report Type: 
  Country: None (occurrence: None)
  Receive Date: 20110318
  Receipt Date: 20110315
  Transmission Date: 20110831
  Serious: Yes (Other)
  Sender: FDA-Public Use
  Company Number: CA-ELI_LILLY_AND_COMPANY-CA201103004447

PATIENT
  Sex: Male

DRUGS (10)
  1. ZYPREXA [Suspect]
     Dosage: 7.5 MG, EACH EVENING
  2. SEROQUEL [Concomitant]
     Dosage: 150 MG, DAILY (1/D)
  3. MIRTAZAPINE [Concomitant]
     Dosage: 30 MG, DAILY (1/D)
  4. ZYPREXA [Suspect]
     Dosage: 10 MG, EACH EVENING
  5. CLONAZEPAM [Concomitant]
     Dosage: 0.5 MG, 4/D
  6. OXAZEPAM [Concomitant]
     Dosage: 30 MG, DAILY (1/D)
  7. PANTOLOC                           /01263202/ [Concomitant]
     Dosage: 40 MG, DAILY (1/D)
  8. NEXIUM [Concomitant]
     Dosage: 40 MG, DAILY (1/D)
  9. EFFEXOR [Concomitant]
     Dosage: 37.5 MG, 2/D
  10. ZYPREXA [Suspect]
     Dosage: 10 MG, EACH EVENING
     Dates: start: 20030101

REACTIONS (4)
  - CEREBROVASCULAR ACCIDENT [None]
  - TYPE 2 DIABETES MELLITUS [None]
  - HYPERGLYCAEMIA [None]
  - PANCREATITIS [None]
